FAERS Safety Report 20590343 (Version 1)
Quarter: 2022Q1

REPORT INFORMATION
  Report Type: Report from Study
  Country: US (occurrence: US)
  Receive Date: 20220314
  Receipt Date: 20220314
  Transmission Date: 20220424
  Serious: Yes (Death)
  Sender: FDA-Public Use
  Company Number: US-UCBSA-2022013300

PATIENT
  Age: 90 Year
  Sex: Female

DRUGS (1)
  1. ROTIGOTINE [Suspect]
     Active Substance: ROTIGOTINE
     Indication: Parkinson^s disease
     Dosage: 4MG 1 PATCH DAILY
     Dates: end: 20220302

REACTIONS (1)
  - Death [Fatal]

NARRATIVE: CASE EVENT DATE: 20220302
